FAERS Safety Report 6251115-7 (Version None)
Quarter: 2009Q2

REPORT INFORMATION
  Report Type: 
  Country: None (occurrence: None)
  Receive Date: 20090630
  Receipt Date: 20090619
  Transmission Date: 20091009
  Serious: Yes (Death, Hospitalization)
  Sender: FDA-Public Use
  Company Number: US-AMGEN-STX298982

PATIENT
  Sex: Male

DRUGS (4)
  1. ENBREL [Suspect]
     Indication: RHEUMATOID ARTHRITIS
     Route: 058
     Dates: end: 20090510
  2. METHOTREXATE [Suspect]
  3. UNSPECIFIED DIURETIC [Concomitant]
     Route: 065
  4. UNSPECIFIED ANTIHYPERTENSIVE AGENT [Concomitant]
     Route: 065

REACTIONS (6)
  - BACTERAEMIA [None]
  - DEATH [None]
  - HEPATIC CIRRHOSIS [None]
  - PAIN [None]
  - PASTEURELLA INFECTION [None]
  - PNEUMONIA [None]
